FAERS Safety Report 4506977-8 (Version None)
Quarter: 2004Q4

REPORT INFORMATION
  Report Type: 
  Country: None (occurrence: None)
  Receive Date: 20041117
  Receipt Date: 20041101
  Transmission Date: 20050328
  Serious: Yes (Hospitalization)
  Sender: FDA-Public Use
  Company Number: 9215

PATIENT
  Age: 59 Year
  Sex: Male

DRUGS (6)
  1. AMIODARONE [Suspect]
     Dosage: 200 MG
     Route: 048
     Dates: end: 20041008
  2. CAPTOPRIL [Concomitant]
  3. FRUSEMIDE [Concomitant]
  4. AMLODIPINE [Concomitant]
  5. ACETYLSALICYLIC ACID [Concomitant]
  6. METFORMIN HCL [Concomitant]

REACTIONS (2)
  - PULMONARY FIBROSIS [None]
  - RENAL IMPAIRMENT [None]
